FAERS Safety Report 6770862-1 (Version None)
Quarter: 2010Q2

REPORT INFORMATION
  Report Type: 
  Country: None (occurrence: None)
  Receive Date: 20100614
  Receipt Date: 20100604
  Transmission Date: 20101027
  Serious: Yes (Hospitalization)
  Sender: FDA-Public Use
  Company Number: A-CH2010-37084

PATIENT
  Age: 54 Year
  Sex: Male
  Weight: 73 kg

DRUGS (15)
  1. TRACLEER [Suspect]
     Indication: PULMONARY ARTERIAL HYPERTENSION
     Dosage: 62.5 MG, TID, ORAL; 62.5 MG, BID, ORAL; 125 MG, BID, ORAL
     Route: 048
     Dates: start: 20090521, end: 20090101
  2. TRACLEER [Suspect]
     Indication: PULMONARY ARTERIAL HYPERTENSION
     Dosage: 62.5 MG, TID, ORAL; 62.5 MG, BID, ORAL; 125 MG, BID, ORAL
     Route: 048
     Dates: start: 20090101, end: 20090730
  3. TRACLEER [Suspect]
     Indication: PULMONARY ARTERIAL HYPERTENSION
     Dosage: 62.5 MG, TID, ORAL; 62.5 MG, BID, ORAL; 125 MG, BID, ORAL
     Route: 048
     Dates: start: 20090731
  4. ASPIRIN [Suspect]
     Dates: start: 20040101
  5. WARFARIN POTASSIUM (WARFARIN POTASSIUM) [Suspect]
     Dates: start: 20040101
  6. BERAPROST SODIUM (BERAPROST SODIUM) [Concomitant]
  7. SILDENAFIL CITRATE [Concomitant]
  8. FUROSEMIDE [Concomitant]
  9. METILDIGOXIN (METILDIGOXIN) [Concomitant]
  10. EPLERENONE (EPLERENONE) [Concomitant]
  11. LEVOTHYROXINE SODIUM [Concomitant]
  12. URSODIOL [Concomitant]
  13. EPALRESTAT (EPALRESTAT) [Concomitant]
  14. ALLOPURINOL [Concomitant]
  15. OXYGEN (OXYGEN) [Concomitant]

REACTIONS (1)
  - PULMONARY HAEMORRHAGE [None]
